FAERS Safety Report 10025383 (Version 2)
Quarter: 2014Q2

REPORT INFORMATION
  Report Type: Spontaneous
  Country: US (occurrence: US)
  Receive Date: 20140320
  Receipt Date: 20140508
  Transmission Date: 20141212
  Serious: No
  Sender: FDA-Public Use
  Company Number: US-PFIZER INC-2014079518

PATIENT
  Age: 69 Year
  Sex: Female
  Weight: 81.63 kg

DRUGS (2)
  1. LYRICA [Suspect]
     Indication: PAIN
     Dosage: 75 MG, 2X/DAY
     Dates: start: 2013, end: 2014
  2. CAPOZIDE [Concomitant]
     Indication: HYPERTENSION
     Dosage: ^25 MG^, DAILY

REACTIONS (1)
  - Rash [Recovered/Resolved]
